FAERS Safety Report 16456471 (Version 2)
Quarter: 2019Q3

REPORT INFORMATION
  Report Type: Spontaneous
  Country: US (occurrence: US)
  Receive Date: 20190620
  Receipt Date: 20190828
  Transmission Date: 20191004
  Serious: Yes (Other)
  Sender: FDA-Public Use
  Company Number: US-PFIZER INC-2019260803

PATIENT
  Age: 57 Year
  Sex: Male
  Weight: 118 kg

DRUGS (3)
  1. LYRICA [Suspect]
     Active Substance: PREGABALIN
     Indication: PARAESTHESIA
     Dosage: 200 MG, 3X/DAY
  2. LYRICA [Suspect]
     Active Substance: PREGABALIN
     Indication: PERIPHERAL COLDNESS
  3. OXYCODONE [Concomitant]
     Active Substance: OXYCODONE
     Dosage: 10 MG, 3X/DAY
     Route: 048

REACTIONS (10)
  - Withdrawal syndrome [Unknown]
  - Intentional product misuse [Unknown]
  - Back pain [Unknown]
  - Back disorder [Unknown]
  - Disturbance in attention [Unknown]
  - Basal cell carcinoma [Unknown]
  - Amnesia [Unknown]
  - Muscle spasms [Unknown]
  - Cyst [Unknown]
  - Therapeutic product effect incomplete [Unknown]
